FAERS Safety Report 14664915 (Version 1)
Quarter: 2018Q1

REPORT INFORMATION
  Report Type: Spontaneous
  Country: SI (occurrence: SI)
  Receive Date: 20180321
  Receipt Date: 20180321
  Transmission Date: 20180509
  Serious: Yes (Hospitalization, Other)
  Sender: FDA-Public Use
  Company Number: SI-VALIDUS PHARMACEUTICALS LLC-SI-2018VAL000547

PATIENT
  Age: 44 Year
  Sex: Male

DRUGS (1)
  1. FUROSEMIDE. [Suspect]
     Active Substance: FUROSEMIDE
     Indication: PRODUCT USED FOR UNKNOWN INDICATION
     Dosage: 20 MG, UNK
     Route: 042

REACTIONS (26)
  - Left atrial enlargement [Unknown]
  - Asthenia [Unknown]
  - Hypervolaemia [Unknown]
  - Cardiac ventricular disorder [Unknown]
  - Ejection fraction decreased [Unknown]
  - Cardiomyopathy [Unknown]
  - Heart disease congenital [Unknown]
  - Cardiac failure [Unknown]
  - Dyspnoea [Unknown]
  - Blood pressure increased [Unknown]
  - Fatigue [Unknown]
  - Pain [Unknown]
  - Bundle branch block left [Unknown]
  - Sinus tachycardia [Unknown]
  - Blood parathyroid hormone abnormal [Unknown]
  - Oedema peripheral [Unknown]
  - Glomerular filtration rate decreased [Unknown]
  - Pulmonary hypertension [Unknown]
  - N-terminal prohormone brain natriuretic peptide increased [Unknown]
  - Pericardial effusion [Unknown]
  - Poor quality sleep [Unknown]
  - Abdominal pain upper [Unknown]
  - Blood bilirubin increased [Unknown]
  - Heart rate increased [Unknown]
  - Cough [Unknown]
  - Left ventricular enlargement [Unknown]

NARRATIVE: CASE EVENT DATE: 20171024
